FAERS Safety Report 18729799 (Version 2)
Quarter: 2021Q1

REPORT INFORMATION
  Report Type: Spontaneous
  Country: US (occurrence: US)
  Receive Date: 20210112
  Receipt Date: 20210304
  Transmission Date: 20210419
  Serious: Yes (Hospitalization)
  Sender: FDA-Public Use
  Company Number: US-PARATEK PHARMACEUTICALS, INC.-2020PTK00292

PATIENT
  Age: 62 Year
  Sex: Female

DRUGS (3)
  1. NUZYRA [Suspect]
     Active Substance: OMADACYCLINE
     Indication: RHEUMATOID ARTHRITIS
     Dosage: 300 MG, 1X/DAY (EVERY 24 HRS)
     Route: 048
     Dates: start: 20201211
  2. NUZYRA [Suspect]
     Active Substance: OMADACYCLINE
     Dosage: 300 MG, 1X/DAY
     Route: 048
     Dates: start: 20201216
  3. NUZYRA [Suspect]
     Active Substance: OMADACYCLINE
     Dosage: 150 MG, 1X/DAY
     Route: 048
     Dates: start: 20201216

REACTIONS (6)
  - Medical device change [Unknown]
  - Staphylococcal infection [Not Recovered/Not Resolved]
  - Urinary tract infection [Recovered/Resolved]
  - Complication associated with device [Not Recovered/Not Resolved]
  - Surgery [Unknown]
  - Off label use [Not Recovered/Not Resolved]

NARRATIVE: CASE EVENT DATE: 202012
